FAERS Safety Report 5845019-9 (Version None)
Quarter: 2008Q3

REPORT INFORMATION
  Report Type: 
  Country: None (occurrence: None)
  Receive Date: 20080813
  Receipt Date: 20080813
  Transmission Date: 20090109
  Serious: Yes (Other)
  Sender: FDA-Public Use
  Company Number: None

PATIENT
  Age: 49 Year
  Sex: Female
  Weight: 81.6475 kg

DRUGS (7)
  1. CARBAMAZEPINE [Suspect]
     Indication: BIPOLAR DISORDER
     Dosage: 200 MG 3 TIMES DAILY PO
     Route: 048
     Dates: start: 20080529, end: 20080702
  2. METOPROLOL TARTRATE [Concomitant]
  3. ADVAID [Concomitant]
  4. XOPENEX HFA [Concomitant]
  5. HYDROXYZINE [Concomitant]
  6. POTASSIUM CHLORIDE [Concomitant]
  7. ABILIFY [Concomitant]

REACTIONS (2)
  - EATING DISORDER [None]
  - HEADACHE [None]
